FAERS Safety Report 25124472 (Version 1)
Quarter: 2025Q1

REPORT INFORMATION
  Report Type: Spontaneous
  Country: FR (occurrence: FR)
  Receive Date: 20250326
  Receipt Date: 20250326
  Transmission Date: 20250408
  Serious: Yes (Other)
  Sender: PFIZER
  Company Number: FR-PFIZER INC-PV202400063400

PATIENT
  Age: 40 Year
  Sex: Female

DRUGS (1)
  1. LORLATINIB [Suspect]
     Active Substance: LORLATINIB
     Indication: Lung neoplasm malignant

REACTIONS (22)
  - Haematochezia [Unknown]
  - Flatulence [Recovered/Resolved]
  - Fatigue [Not Recovered/Not Resolved]
  - Rash maculo-papular [Recovered/Resolved]
  - Dry skin [Recovered/Resolved]
  - Vision blurred [Recovered/Resolved]
  - Dry mouth [Not Recovered/Not Resolved]
  - Peripheral sensory neuropathy [Not Recovered/Not Resolved]
  - Abdominal pain [Recovered/Resolved]
  - Constipation [Not Recovered/Not Resolved]
  - Hot flush [Recovered/Resolved]
  - Menstruation irregular [Not Recovered/Not Resolved]
  - Amenorrhoea [Not Recovered/Not Resolved]
  - Urinary incontinence [Recovered/Resolved]
  - Cheilitis [Recovered/Resolved]
  - Thirst [Not Recovered/Not Resolved]
  - Lip dry [Not Recovered/Not Resolved]
  - Insomnia [Recovered/Resolved]
  - Cough [Recovered/Resolved]
  - Tinnitus [Not Recovered/Not Resolved]
  - Headache [Unknown]
  - Arthralgia [Unknown]
